FAERS Safety Report 10622659 (Version 1)
Quarter: 2014Q4

REPORT INFORMATION
  Report Type: Spontaneous
  Country: BR (occurrence: BR)
  Receive Date: 20141203
  Receipt Date: 20141203
  Transmission Date: 20150529
  Serious: Yes (Other)
  Sender: FDA-Public Use
  Company Number: BR-PFIZER INC-2014328463

PATIENT
  Age: 90 Year
  Sex: Male
  Weight: 52 kg

DRUGS (3)
  1. ACETILCISTEINA [Concomitant]
     Active Substance: ACETYLCYSTEINE
     Indication: PULMONARY FIBROSIS
  2. FORASEQ [Concomitant]
     Active Substance: BUDESONIDE\FORMOTEROL FUMARATE
     Indication: PULMONARY FIBROSIS
  3. CARDURAN XL [Suspect]
     Active Substance: DOXAZOSIN MESYLATE
     Indication: DYSURIA
     Dosage: 4 MG, DAILY
     Route: 048
     Dates: start: 2012

REACTIONS (2)
  - Hernia [Unknown]
  - Condition aggravated [Unknown]
